FAERS Safety Report 11101477 (Version 3)
Quarter: 2015Q3

REPORT INFORMATION
  Report Type: Spontaneous
  Country: DK (occurrence: DK)
  Receive Date: 20150508
  Receipt Date: 20150918
  Transmission Date: 20151125
  Serious: Yes (Death, Life-Threatening, Hospitalization, Other)
  Sender: FDA-Public Use
  Company Number: DK-NOVOPROD-448125

PATIENT
  Age: 73 Year
  Sex: Female

DRUGS (9)
  1. ISOPTIN [Concomitant]
     Active Substance: VERAPAMIL HYDROCHLORIDE
     Dosage: 120 MG
     Route: 065
  2. HJERTEMAGNYL                       /00002701/ [Concomitant]
     Dosage: 75 MG
     Route: 065
  3. VICTOZA [Suspect]
     Active Substance: LIRAGLUTIDE
     Indication: WEIGHT CONTROL
     Dosage: 6 MG, QD
     Route: 065
     Dates: start: 20140124, end: 20150424
  4. DUORESP [Concomitant]
     Dosage: 320/9 MG
     Route: 065
  5. VENTOLINE                          /00139501/ [Concomitant]
     Active Substance: ALBUTEROL
     Dosage: 0.2 MG
     Route: 065
  6. SIMVASTATIN. [Concomitant]
     Active Substance: SIMVASTATIN
     Dosage: 40 MG, QD (ONCE DAILY)
     Route: 065
  7. VICTOZA [Suspect]
     Active Substance: LIRAGLUTIDE
     Indication: PRODUCT USE ISSUE
  8. MONTELUCAST [Concomitant]
     Active Substance: MONTELUKAST SODIUM
     Dosage: 10 MG, QD (ONCE DAILY)
     Route: 065
  9. SPIRIVA [Concomitant]
     Active Substance: TIOTROPIUM BROMIDE MONOHYDRATE
     Dosage: UNK
     Route: 065

REACTIONS (3)
  - Cholecystitis acute [Fatal]
  - Off label use [Recovered/Resolved]
  - Multi-organ failure [Fatal]

NARRATIVE: CASE EVENT DATE: 20140124
